FAERS Safety Report 7060263-3 (Version None)
Quarter: 2010Q4

REPORT INFORMATION
  Report Type: 
  Country: None (occurrence: None)
  Receive Date: 20101025
  Receipt Date: 20101014
  Transmission Date: 20110411
  Serious: Yes (Hospitalization)
  Sender: FDA-Public Use
  Company Number: DE-WYE-H18285810

PATIENT
  Sex: Male
  Weight: 85 kg

DRUGS (2)
  1. AVASTIN [Suspect]
     Indication: RENAL CELL CARCINOMA
     Dates: start: 20100805, end: 20100916
  2. ROFERON-A [Suspect]
     Indication: RENAL CELL CARCINOMA
     Dosage: 9 MIU THREE TIMES PER WEEK
     Dates: start: 20100805, end: 20100916

REACTIONS (1)
  - WOUND COMPLICATION [None]
